FAERS Safety Report 16814781 (Version 1)
Quarter: 2019Q3

REPORT INFORMATION
  Report Type: Spontaneous
  Country: IT (occurrence: IT)
  Receive Date: 20190917
  Receipt Date: 20190917
  Transmission Date: 20191005
  Serious: Yes (Other)
  Sender: FDA-Public Use
  Company Number: IT-ACCORD-154953

PATIENT
  Age: 56 Year
  Sex: Female

DRUGS (2)
  1. ETOPOSIDE. [Suspect]
     Active Substance: ETOPOSIDE
     Indication: LUNG ADENOCARCINOMA
     Route: 042
     Dates: start: 20190801, end: 20190801
  2. CARBOPLATIN. [Suspect]
     Active Substance: CARBOPLATIN
     Indication: LUNG ADENOCARCINOMA
     Route: 042
     Dates: start: 20190801, end: 20190801

REACTIONS (4)
  - Vertigo [Recovered/Resolved]
  - Asthenia [Recovered/Resolved]
  - Anaemia [Recovered/Resolved]
  - Neutrophilia [Recovered/Resolved]

NARRATIVE: CASE EVENT DATE: 20190814
